FAERS Safety Report 4314913-2 (Version None)
Quarter: 2004Q1

REPORT INFORMATION
  Report Type: 
  Country: None (occurrence: None)
  Receive Date: 20040310
  Receipt Date: 20040310
  Transmission Date: 20041129
  Serious: No
  Sender: FDA-Public Use
  Company Number: None

PATIENT
  Sex: Female

DRUGS (1)
  1. LISINOPRIL [Suspect]
     Dosage: ONE PO QD
     Route: 048
     Dates: start: 20031031

REACTIONS (2)
  - ANGIONEUROTIC OEDEMA [None]
  - GLOSSITIS [None]
